FAERS Safety Report 22763913 (Version 11)
Quarter: 2024Q2

REPORT INFORMATION
  Report Type: Report from Study
  Country: US (occurrence: US)
  Receive Date: 20230730
  Receipt Date: 20240528
  Transmission Date: 20240716
  Serious: Yes (Hospitalization, Other)
  Sender: FDA-Public Use
  Company Number: US-ABBVIE-5343637

PATIENT
  Sex: Female

DRUGS (5)
  1. RINVOQ [Suspect]
     Active Substance: UPADACITINIB
     Indication: Dermatitis atopic
     Route: 048
     Dates: start: 20230408
  2. RINVOQ [Suspect]
     Active Substance: UPADACITINIB
     Indication: Dermatitis atopic
     Route: 048
  3. RINVOQ [Suspect]
     Active Substance: UPADACITINIB
     Indication: Dermatitis atopic
     Route: 048
  4. RINVOQ [Suspect]
     Active Substance: UPADACITINIB
     Indication: Dermatitis atopic
     Dosage: STOP DATE 2023
     Route: 048
     Dates: start: 20230307
  5. RINVOQ [Suspect]
     Active Substance: UPADACITINIB
     Indication: Dermatitis atopic
     Route: 048
     Dates: start: 20230125

REACTIONS (21)
  - Rectal prolapse [Recovering/Resolving]
  - Gait disturbance [Unknown]
  - Prolapse [Unknown]
  - Dermatitis atopic [Not Recovered/Not Resolved]
  - Systemic lupus erythematosus [Not Recovered/Not Resolved]
  - Brain fog [Unknown]
  - Cystocele [Recovering/Resolving]
  - Sensory loss [Unknown]
  - Urinary incontinence [Not Recovered/Not Resolved]
  - Mononeuropathy multiplex [Not Recovered/Not Resolved]
  - Sitting disability [Unknown]
  - Unevaluable event [Recovered/Resolved]
  - Renal failure [Recovering/Resolving]
  - Confusional state [Unknown]
  - Toxicity to various agents [Unknown]
  - Mobility decreased [Unknown]
  - Fall [Recovering/Resolving]
  - Post procedural complication [Unknown]
  - Ammonia increased [Unknown]
  - Ankle fracture [Recovering/Resolving]
  - Nerve injury [Unknown]

NARRATIVE: CASE EVENT DATE: 20230101
